FAERS Safety Report 22003122 (Version 2)
Quarter: 2023Q1

REPORT INFORMATION
  Report Type: Spontaneous
  Country: US (occurrence: US)
  Receive Date: 20230217
  Receipt Date: 20230303
  Transmission Date: 20230418
  Serious: Yes (Hospitalization, Other)
  Sender: FDA-Public Use
  Company Number: US-002147023-NVSC2023US032440

PATIENT
  Sex: Female

DRUGS (1)
  1. KESIMPTA [Suspect]
     Active Substance: OFATUMUMAB
     Indication: Product used for unknown indication
     Dosage: 20 MG/KG, QMO
     Route: 058
     Dates: start: 202104

REACTIONS (5)
  - Asthenia [Unknown]
  - Pneumonia aspiration [Unknown]
  - Leukocytosis [Unknown]
  - Agranulocytosis [Unknown]
  - Neutropenia [Unknown]
